FAERS Safety Report 11059404 (Version 1)
Quarter: 2015Q2

REPORT INFORMATION
  Report Type: Spontaneous
  Country: US (occurrence: None)
  Receive Date: 20150420
  Receipt Date: 20150420
  Transmission Date: 20150821
  Serious: No
  Sender: FDA-Public Use
  Company Number: AEGR001132

PATIENT
  Age: 53 Year
  Sex: Female
  Weight: 88.9 kg

DRUGS (1)
  1. JUXTAPID [Suspect]
     Active Substance: LOMITAPIDE MESYLATE
     Indication: TYPE IIA HYPERLIPIDAEMIA
     Dates: start: 20140721

REACTIONS (1)
  - Vomiting [None]

NARRATIVE: CASE EVENT DATE: 20141222
